FAERS Safety Report 9484334 (Version 2)
Quarter: 2013Q3

REPORT INFORMATION
  Report Type: Report from Study
  Country: DE (occurrence: DE)
  Receive Date: 20130828
  Receipt Date: 20130828
  Transmission Date: 20140515
  Serious: Yes (Other)
  Sender: FDA-Public Use
  Company Number: PHHO2010DE17550

PATIENT
  Sex: Female
  Weight: 70 kg

DRUGS (2)
  1. ALISKIREN [Suspect]
     Indication: CARDIOVASCULAR DISORDER
     Route: 048
     Dates: start: 20080201
  2. FUROSEMIDE [Concomitant]

REACTIONS (1)
  - Catheterisation cardiac [Unknown]
